FAERS Safety Report 10706723 (Version 1)
Quarter: 2015Q1

REPORT INFORMATION
  Report Type: Spontaneous
  Country: US (occurrence: US)
  Receive Date: 20150113
  Receipt Date: 20150113
  Transmission Date: 20150721
  Serious: Yes (Other)
  Sender: FDA-Public Use
  Company Number: US-PFIZER INC-2015011673

PATIENT
  Sex: Male

DRUGS (1)
  1. SUTENT [Suspect]
     Active Substance: SUNITINIB MALATE
     Indication: RENAL CANCER
     Dosage: UNK

REACTIONS (8)
  - Second primary malignancy [Unknown]
  - Lung neoplasm malignant [Unknown]
  - Gait disturbance [Unknown]
  - Pulmonary oedema [Unknown]
  - Dyspnoea [Unknown]
  - Thyroid disorder [Unknown]
  - Fatigue [Unknown]
  - Diarrhoea [Unknown]
